FAERS Safety Report 10406050 (Version 1)
Quarter: 2014Q3

REPORT INFORMATION
  Report Type: Report from Study
  Country: BR (occurrence: BR)
  Receive Date: 20140825
  Receipt Date: 20140825
  Transmission Date: 20150326
  Serious: Yes (Other)
  Sender: FDA-Public Use
  Company Number: BR-ABBVIE-14K-020-1273968-00

PATIENT
  Sex: Female
  Weight: 69 kg

DRUGS (2)
  1. HUMIRA [Suspect]
     Active Substance: ADALIMUMAB
     Route: 058
  2. HUMIRA [Suspect]
     Active Substance: ADALIMUMAB
     Indication: ANKYLOSING SPONDYLITIS
     Route: 058
     Dates: start: 20100101

REACTIONS (6)
  - Spinal pain [Not Recovered/Not Resolved]
  - Injection site erythema [Recovered/Resolved]
  - Influenza [Unknown]
  - Finger deformity [Not Recovered/Not Resolved]
  - Musculoskeletal pain [Unknown]
  - Musculoskeletal chest pain [Unknown]

NARRATIVE: CASE EVENT DATE: 2013
